FAERS Safety Report 7717372-2 (Version None)
Quarter: 2011Q3

REPORT INFORMATION
  Report Type: 
  Country: None (occurrence: None)
  Receive Date: 20110830
  Receipt Date: 20110822
  Transmission Date: 20111222
  Serious: Yes (Hospitalization)
  Sender: FDA-Public Use
  Company Number: US-JNJFOC-20110810981

PATIENT
  Sex: Female
  Weight: 46.3 kg

DRUGS (2)
  1. REMICADE [Suspect]
     Route: 042
     Dates: start: 20110821
  2. REMICADE [Suspect]
     Indication: CROHN'S DISEASE
     Route: 042
     Dates: start: 20090301

REACTIONS (3)
  - DISEASE PROGRESSION [None]
  - CROHN'S DISEASE [None]
  - CONDITION AGGRAVATED [None]
